FAERS Safety Report 23968662 (Version 1)
Quarter: 2024Q2

REPORT INFORMATION
  Report Type: Report from Study
  Country: US (occurrence: US)
  Receive Date: 20240612
  Receipt Date: 20240612
  Transmission Date: 20240716
  Serious: Yes (Other)
  Sender: FDA-Public Use
  Company Number: US-SHIONOGI B.V.-2024001162

PATIENT

DRUGS (9)
  1. FETROJA [Suspect]
     Active Substance: CEFIDEROCOL SULFATE TOSYLATE
     Indication: Wound infection bacterial
     Dosage: UNK
     Route: 042
  2. FETROJA [Suspect]
     Active Substance: CEFIDEROCOL SULFATE TOSYLATE
     Indication: Acinetobacter bacteraemia
     Dosage: UNK
     Route: 042
  3. FETROJA [Suspect]
     Active Substance: CEFIDEROCOL SULFATE TOSYLATE
     Indication: Drug resistance
  4. TIGECYCLINE [Suspect]
     Active Substance: TIGECYCLINE
     Indication: Wound infection bacterial
     Dosage: UNK
     Route: 065
  5. TIGECYCLINE [Suspect]
     Active Substance: TIGECYCLINE
     Indication: Acinetobacter infection
     Dosage: UNK
     Route: 065
  6. TIGECYCLINE [Suspect]
     Active Substance: TIGECYCLINE
     Indication: Drug resistance
  7. VANCOMYCIN [Concomitant]
     Active Substance: VANCOMYCIN
     Indication: Product used for unknown indication
     Dosage: UNK
     Route: 065
  8. CEFEPIME [Concomitant]
     Active Substance: CEFEPIME HYDROCHLORIDE
     Indication: Product used for unknown indication
     Dosage: UNK
     Route: 065
  9. METRONIDAZOLE [Concomitant]
     Active Substance: METRONIDAZOLE
     Indication: Product used for unknown indication
     Dosage: UNK
     Route: 065

REACTIONS (3)
  - Pathogen resistance [Unknown]
  - Drug resistance [Unknown]
  - Treatment failure [Unknown]
